FAERS Safety Report 14686223 (Version 1)
Quarter: 2018Q1

REPORT INFORMATION
  Report Type: Spontaneous
  Country: US (occurrence: US)
  Receive Date: 20180326
  Receipt Date: 20180326
  Transmission Date: 20180509
  Serious: Yes (Other)
  Sender: FDA-Public Use
  Company Number: None

PATIENT
  Age: 22 Year
  Sex: Female
  Weight: 101.25 kg

DRUGS (9)
  1. ALBUTEROL. [Concomitant]
     Active Substance: ALBUTEROL
  2. CEFDINIR. [Suspect]
     Active Substance: CEFDINIR
     Indication: SINUSITIS
     Dosage: ?          QUANTITY:1 CAPSULE(S);?
     Route: 048
  3. FLUTICASONE. [Concomitant]
     Active Substance: FLUTICASONE
  4. CETIRIZINE [Concomitant]
     Active Substance: CETIRIZINE HYDROCHLORIDE
  5. MELATONIN [Concomitant]
     Active Substance: MELATONIN
  6. ROPINIROLE. [Concomitant]
     Active Substance: ROPINIROLE
  7. NAPROXEN. [Concomitant]
     Active Substance: NAPROXEN
  8. METHYLPHENIDATE. [Concomitant]
     Active Substance: METHYLPHENIDATE
  9. SERTRALINE [Concomitant]
     Active Substance: SERTRALINE HYDROCHLORIDE

REACTIONS (4)
  - Hyperchlorhydria [None]
  - Pruritus [None]
  - Tinnitus [None]
  - Headache [None]

NARRATIVE: CASE EVENT DATE: 20180325
